FAERS Safety Report 8360640-4 (Version None)
Quarter: 2012Q1

REPORT INFORMATION
  Report Type: 
  Country: None (occurrence: None)
  Receive Date: 20120323
  Receipt Date: 20110203
  Transmission Date: 20120608
  Serious: Yes (Hospitalization)
  Sender: FDA-Public Use
  Company Number: 163-21880-11020558

PATIENT
  Age: 72 Year
  Sex: Male

DRUGS (4)
  1. REVLIMID [Suspect]
     Indication: MULTIPLE MYELOMA
     Dosage: 25 MG, 1 IN 1 D, PO
     Route: 048
     Dates: start: 20090329
  2. PLAVIX [Concomitant]
  3. FUROSEMIDE [Concomitant]
  4. AMLODIPINE [Concomitant]

REACTIONS (1)
  - CEREBROVASCULAR ACCIDENT [None]
